FAERS Safety Report 17352105 (Version 4)
Quarter: 2020Q1

REPORT INFORMATION
  Report Type: Spontaneous
  Country: US (occurrence: US)
  Receive Date: 20200130
  Receipt Date: 20200306
  Transmission Date: 20200409
  Serious: No
  Sender: FDA-Public Use
  Company Number: US-PFIZER INC-2020035404

PATIENT
  Age: 51 Year
  Sex: Female
  Weight: 61.23 kg

DRUGS (4)
  1. PREMPRO [Suspect]
     Active Substance: ESTROGENS, CONJUGATED\MEDROXYPROGESTERONE ACETATE
     Indication: HORMONE LEVEL ABNORMAL
     Dosage: UNK, SINGLE (TOOK 0.3MG/1.5MG WITH WATER THAT EVENING ONCE)
     Dates: start: 20200121, end: 20200121
  2. PREMPRO [Suspect]
     Active Substance: ESTROGENS, CONJUGATED\MEDROXYPROGESTERONE ACETATE
     Indication: MENOPAUSAL SYMPTOMS
     Dosage: UNK, DAILY (0.3 MG DAILY - 1.5 MG 1 BY MOUTH DAILY FOR 30 DAYS)
     Route: 048
     Dates: start: 20200121, end: 20200127
  3. SYNTHROID [Concomitant]
     Active Substance: LEVOTHYROXINE SODIUM
     Dosage: UNK
  4. METFORMIN [Concomitant]
     Active Substance: METFORMIN HYDROCHLORIDE
     Dosage: UNK

REACTIONS (6)
  - Discomfort [Unknown]
  - Muscle spasms [Recovered/Resolved with Sequelae]
  - Rash pruritic [Recovering/Resolving]
  - Insomnia [Unknown]
  - Nausea [Recovered/Resolved]
  - Headache [Recovered/Resolved]

NARRATIVE: CASE EVENT DATE: 20200122
